FAERS Safety Report 16934088 (Version 1)
Quarter: 2019Q4

REPORT INFORMATION
  Report Type: Spontaneous
  Country: JP (occurrence: JP)
  Receive Date: 20191018
  Receipt Date: 20191018
  Transmission Date: 20200122
  Serious: Yes (Other)
  Sender: FDA-Public Use
  Company Number: JP-TEVA-2019-JP-1125320

PATIENT
  Age: 33 Year
  Sex: Male

DRUGS (3)
  1. CAFFEINE. [Suspect]
     Active Substance: CAFFEINE
     Indication: RHABDOMYOSARCOMA
     Dosage: DOSE 1.5 G/M2 FOR 3 DAYS, THE PATIENT RECEIVED 5 CYCLES OF TREATMENT
     Route: 065
  2. DOXORUBICIN [Concomitant]
     Active Substance: DOXORUBICIN
     Indication: RHABDOMYOSARCOMA
     Dosage: FOR 3 DAYS, THE PATIENT RECEIVED 5 CYCLES OF TREATMENT.
     Route: 065
  3. CISPLATIN. [Suspect]
     Active Substance: CISPLATIN
     Indication: RHABDOMYOSARCOMA
     Dosage: 120 MG/M2 FOR 1DAY THE PATIENT RECEIVED 5 CYCLES OF TREATMENT.
     Route: 065

REACTIONS (1)
  - Renal impairment [Unknown]
